FAERS Safety Report 7704814-1 (Version None)
Quarter: 2011Q3

REPORT INFORMATION
  Report Type: 
  Country: None (occurrence: None)
  Receive Date: 20110823
  Receipt Date: 20110817
  Transmission Date: 20111222
  Serious: Yes (Other)
  Sender: FDA-Public Use
  Company Number: DK-BAXTER-2011BH000958

PATIENT
  Age: 17 Year
  Sex: Female

DRUGS (42)
  1. MESNA [Suspect]
     Indication: HODGKIN'S DISEASE
     Dosage: 03JUL2006-04SEP2006: 200 MG I.V.28SEP2006-03OKT2006: 230 MG I.V.
     Route: 042
     Dates: start: 20061003, end: 20061003
  2. VINCRISTINE SULFATE [Suspect]
     Dosage: BOLUS INJEKTION.
     Route: 042
     Dates: start: 20060731, end: 20060731
  3. DOXORUBICIN HCL [Suspect]
     Route: 042
     Dates: start: 20060508, end: 20060508
  4. MESNA [Suspect]
     Dosage: 03JUL2006-04SEP2006: 200 MG I.V.28SEP2006-03OKT2006: 230 MG I.V.
     Route: 042
     Dates: start: 20060925, end: 20060925
  5. MESNA [Suspect]
     Dosage: 03JUL2006-04SEP2006: 200 MG I.V.28SEP2006-03OKT2006: 230 MG I.V.
     Route: 042
     Dates: start: 20060703, end: 20060703
  6. VINCRISTINE SULFATE [Suspect]
     Dosage: BOLUS INJEKTION.
     Route: 042
     Dates: start: 20060904, end: 20060904
  7. VINCRISTINE SULFATE [Suspect]
     Dosage: BOLUS INJEKTION.
     Route: 042
     Dates: start: 20060703, end: 20060703
  8. VINCRISTINE SULFATE [Suspect]
     Dosage: BOLUS INJEKTION.
     Route: 042
     Dates: start: 20060612, end: 20060612
  9. ETOPOSIDE [Suspect]
     Route: 042
     Dates: start: 20060508, end: 20060512
  10. CYCLOPHOSPHAMIDE [Suspect]
     Dosage: 03JUL2006-04SEP2006: 750 MG I.V.25SEP2006-03OKT2006: 775 MG I.V.1 TIMES INFUSION
     Route: 042
     Dates: start: 20060828, end: 20060828
  11. VINCRISTINE SULFATE [Suspect]
     Dosage: BOLUS INJEKTION.
     Route: 042
     Dates: start: 20060710, end: 20060710
  12. VINCRISTINE SULFATE [Suspect]
     Dosage: BOLUS INJEKTION.
     Route: 042
     Dates: start: 20060619, end: 20060619
  13. CYCLOPHOSPHAMIDE [Suspect]
     Dosage: 03JUL2006-04SEP2006: 750 MG I.V.25SEP2006-03OKT2006: 775 MG I.V.1 TIMES INFUSION
     Route: 042
     Dates: start: 20060807, end: 20060807
  14. MESNA [Suspect]
     Dosage: 03JUL2006-04SEP2006: 200 MG I.V.28SEP2006-03OKT2006: 230 MG I.V.
     Route: 042
     Dates: start: 20060807, end: 20060807
  15. MESNA [Suspect]
     Dosage: 03JUL2006-04SEP2006: 200 MG I.V.28SEP2006-03OKT2006: 230 MG I.V.
     Route: 042
     Dates: start: 20060710, end: 20060710
  16. PREDNISONE TAB [Suspect]
     Indication: HODGKIN'S DISEASE
     Dosage: 08MAJ2006-03JUL2006: 35+25+25 MG.03JUL2006-28AUG2006:  20 MG X 3.
     Route: 048
     Dates: start: 20060508, end: 20061010
  17. VINCRISTINE SULFATE [Suspect]
     Dosage: BOLUS INJEKTION.
     Route: 042
     Dates: start: 20060605, end: 20060605
  18. VINCRISTINE SULFATE [Suspect]
     Dosage: BOLUS INJEKTION.
     Route: 042
     Dates: start: 20060515, end: 20060515
  19. DOXORUBICIN HCL [Suspect]
     Route: 042
     Dates: start: 20060605, end: 20060605
  20. ETOPOSIDE [Suspect]
     Indication: HODGKIN'S DISEASE
     Route: 042
     Dates: start: 20060605, end: 20060609
  21. GLUCOSE ^SAD^ [Concomitant]
     Indication: FLUID REPLACEMENT
     Route: 051
  22. POTASSIUM CHLORIDE [Concomitant]
     Indication: PRODUCT USED FOR UNKNOWN INDICATION
     Route: 065
  23. CYCLOPHOSPHAMIDE [Suspect]
     Dosage: 03JUL2006-04SEP2006: 750 MG I.V.25SEP2006-03OKT2006: 775 MG I.V.1 TIMES INFUSION
     Route: 042
     Dates: start: 20060925, end: 20060925
  24. CYCLOPHOSPHAMIDE [Suspect]
     Dosage: 03JUL2006-04SEP2006: 750 MG I.V.25SEP2006-03OKT2006: 775 MG I.V.1 TIMES INFUSION
     Route: 042
     Dates: start: 20060710, end: 20060710
  25. CYCLOPHOSPHAMIDE [Suspect]
     Dosage: 03JUL2006-04SEP2006: 750 MG I.V.25SEP2006-03OKT2006: 775 MG I.V.1 TIMES INFUSION
     Route: 042
     Dates: start: 20060703, end: 20060703
  26. MESNA [Suspect]
     Dosage: 03JUL2006-04SEP2006: 200 MG I.V.28SEP2006-03OKT2006: 230 MG I.V.
     Route: 042
     Dates: start: 20060731, end: 20060731
  27. VINCRISTINE SULFATE [Suspect]
     Dosage: BOLUS INJEKTION.
     Route: 042
     Dates: start: 20060508, end: 20060508
  28. SODIUM FLUORIDE [Concomitant]
     Indication: PRODUCT USED FOR UNKNOWN INDICATION
     Route: 065
  29. MESNA [Suspect]
     Dosage: 03JUL2006-04SEP2006: 200 MG I.V.28SEP2006-03OKT2006: 230 MG I.V.
     Route: 042
     Dates: start: 20060904, end: 20060904
  30. MESNA [Suspect]
     Dosage: 03JUL2006-04SEP2006: 200 MG I.V.28SEP2006-03OKT2006: 230 MG I.V.
     Route: 042
     Dates: start: 20060828, end: 20060828
  31. PROCARBAZINE HYDROCHLORIDE [Suspect]
     Indication: HODGKIN'S DISEASE
     Route: 048
     Dates: start: 20060703, end: 20061010
  32. VINCRISTINE SULFATE [Suspect]
     Dosage: BOLUS INJEKTION.
     Route: 042
     Dates: start: 20060925, end: 20060925
  33. VINCRISTINE SULFATE [Suspect]
     Dosage: BOLUS INJEKTION.
     Route: 042
     Dates: start: 20060911, end: 20060911
  34. VINCRISTINE SULFATE [Suspect]
     Dosage: BOLUS INJEKTION.
     Route: 042
     Dates: start: 20060828, end: 20060828
  35. CYCLOPHOSPHAMIDE [Suspect]
     Indication: HODGKIN'S DISEASE
     Dosage: 03JUL2006-04SEP2006: 750 MG I.V.25SEP2006-03OKT2006: 775 MG I.V.1 TIMES INFUSION
     Route: 042
     Dates: start: 20061003, end: 20061003
  36. VINCRISTINE SULFATE [Suspect]
     Indication: HODGKIN'S DISEASE
     Dosage: BOLUS INJEKTION.
     Route: 042
     Dates: start: 20061003, end: 20061003
  37. VINCRISTINE SULFATE [Suspect]
     Dosage: BOLUS INJEKTION.
     Route: 042
     Dates: start: 20060807, end: 20060807
  38. DOXORUBICIN HCL [Suspect]
     Indication: HODGKIN'S DISEASE
     Route: 042
     Dates: start: 20060619, end: 20060619
  39. DOXORUBICIN HCL [Suspect]
     Route: 042
     Dates: start: 20060522, end: 20060522
  40. CYCLOPHOSPHAMIDE [Suspect]
     Dosage: 03JUL2006-04SEP2006: 750 MG I.V.25SEP2006-03OKT2006: 775 MG I.V.1 TIMES INFUSION
     Route: 042
     Dates: start: 20060904, end: 20060904
  41. CYCLOPHOSPHAMIDE [Suspect]
     Dosage: 03JUL2006-04SEP2006: 750 MG I.V.25SEP2006-03OKT2006: 775 MG I.V.1 TIMES INFUSION
     Route: 042
     Dates: start: 20060731, end: 20060731
  42. VINCRISTINE SULFATE [Suspect]
     Dosage: BOLUS INJEKTION.
     Route: 042
     Dates: start: 20060522, end: 20060522

REACTIONS (8)
  - BACK PAIN [None]
  - LYMPHADENOPATHY [None]
  - INTERVERTEBRAL DISC PROTRUSION [None]
  - PERTUSSIS [None]
  - ARTHRALGIA [None]
  - BONE PAIN [None]
  - OSTEONECROSIS [None]
  - FATIGUE [None]
